FAERS Safety Report 6965691-X (Version None)
Quarter: 2010Q3

REPORT INFORMATION
  Report Type: 
  Country: None (occurrence: None)
  Receive Date: 20100903
  Receipt Date: 20100824
  Transmission Date: 20110219
  Serious: Yes (Hospitalization)
  Sender: FDA-Public Use
  Company Number: GB-ROCHE-723392

PATIENT

DRUGS (1)
  1. BEVACIZUMAB [Suspect]
     Dosage: DATE OF LAST DOSE PRIOR TO SAE:23 JULY 2010.
     Route: 065
     Dates: start: 20100426

REACTIONS (1)
  - SCIATICA [None]
